FAERS Safety Report 18580212 (Version 1)
Quarter: 2020Q4

REPORT INFORMATION
  Report Type: Spontaneous
  Country: US (occurrence: US)
  Receive Date: 20201204
  Receipt Date: 20201204
  Transmission Date: 20210114
  Serious: No
  Sender: FDA-Public Use
  Company Number: US-METHAPHARM-2020-US-000325

PATIENT
  Sex: 0

DRUGS (1)
  1. PROVOCHOLINE [Suspect]
     Active Substance: METHACHOLINE CHLORIDE
     Indication: PRODUCT USED FOR UNKNOWN INDICATION
     Dosage: 0.0625 MG/ML FOUR TIMES A WEEK
     Route: 050
     Dates: start: 2020

REACTIONS (3)
  - Dizziness [Recovered/Resolved]
  - Accidental exposure to product [Recovered/Resolved]
  - Headache [Recovered/Resolved]

NARRATIVE: CASE EVENT DATE: 2020
